FAERS Safety Report 4370050-2 (Version None)
Quarter: 2004Q2

REPORT INFORMATION
  Report Type: 
  Country: None (occurrence: None)
  Receive Date: 20040527
  Receipt Date: 20040514
  Transmission Date: 20050107
  Serious: No
  Sender: FDA-Public Use
  Company Number: 2004PK00877

PATIENT
  Age: 61 Year
  Sex: Female

DRUGS (12)
  1. ANTRA [Suspect]
     Indication: PROPHYLAXIS
     Dosage: 40 MG DAILY PO
     Route: 048
     Dates: start: 20040318, end: 20040405
  2. ANTRA [Suspect]
     Indication: ULCER
     Dosage: 40 MG DAILY PO
     Route: 048
     Dates: start: 20040318, end: 20040405
  3. DAFALGAN [Suspect]
     Indication: PAIN
     Dosage: 4 G DAILY
     Dates: start: 20040318, end: 20040413
  4. NOCTAMID [Concomitant]
  5. TRAMAL [Concomitant]
  6. CONDROSULF [Concomitant]
  7. FRAXIPARIN [Concomitant]
  8. DORMICUM [Concomitant]
  9. LEXOTANIL [Concomitant]
  10. ZINACEF [Concomitant]
  11. VILTAREN [Concomitant]
  12. MORPHINE [Concomitant]

REACTIONS (5)
  - ALANINE AMINOTRANSFERASE INCREASED [None]
  - ASPARTATE AMINOTRANSFERASE INCREASED [None]
  - CHOLESTASIS [None]
  - HEPATOCELLULAR DAMAGE [None]
  - LOCALISED OSTEOARTHRITIS [None]
